FAERS Safety Report 26009947 (Version 1)
Quarter: 2025Q4

REPORT INFORMATION
  Report Type: Spontaneous
  Country: CN (occurrence: CN)
  Receive Date: 20251107
  Receipt Date: 20251107
  Transmission Date: 20260118
  Serious: Yes (Hospitalization)
  Sender: BEIGENE
  Company Number: CN-BEIGENE-BGN-2025-018824

PATIENT
  Age: 67 Year
  Weight: 47 kg

DRUGS (12)
  1. TISLELIZUMAB [Suspect]
     Active Substance: TISLELIZUMAB
     Indication: Colon cancer
     Dosage: 200 MILLIGRAM, Q3WK
  2. TISLELIZUMAB [Suspect]
     Active Substance: TISLELIZUMAB
     Dosage: 200 MILLIGRAM, Q3WK
     Route: 041
  3. TISLELIZUMAB [Suspect]
     Active Substance: TISLELIZUMAB
     Dosage: 200 MILLIGRAM, Q3WK
     Route: 041
  4. TISLELIZUMAB [Suspect]
     Active Substance: TISLELIZUMAB
     Dosage: 200 MILLIGRAM, Q3WK
  5. IPILIMUMAB [Suspect]
     Active Substance: IPILIMUMAB
     Indication: Colon cancer
     Dosage: 47 MILLIGRAM, Q6WK
  6. IPILIMUMAB [Suspect]
     Active Substance: IPILIMUMAB
     Dosage: 47 MILLIGRAM, Q6WK
     Route: 041
  7. IPILIMUMAB [Suspect]
     Active Substance: IPILIMUMAB
     Dosage: 47 MILLIGRAM, Q6WK
     Route: 041
  8. IPILIMUMAB [Suspect]
     Active Substance: IPILIMUMAB
     Dosage: 47 MILLIGRAM, Q6WK
  9. SODIUM CHLORIDE [Concomitant]
     Active Substance: SODIUM CHLORIDE
     Indication: Vehicle solution use
     Dosage: 100 MILLILITER, Q3WK
  10. SODIUM CHLORIDE [Concomitant]
     Active Substance: SODIUM CHLORIDE
     Dosage: 100 MILLILITER, Q3WK
     Route: 041
  11. SODIUM CHLORIDE [Concomitant]
     Active Substance: SODIUM CHLORIDE
     Dosage: 100 MILLILITER, Q3WK
     Route: 041
  12. SODIUM CHLORIDE [Concomitant]
     Active Substance: SODIUM CHLORIDE
     Dosage: 100 MILLILITER, Q3WK

REACTIONS (1)
  - Drug eruption [Not Recovered/Not Resolved]
